FAERS Safety Report 24361812 (Version 1)
Quarter: 2024Q3

REPORT INFORMATION
  Report Type: Spontaneous
  Country: AU (occurrence: AU)
  Receive Date: 20240925
  Receipt Date: 20240925
  Transmission Date: 20241017
  Serious: Yes (Hospitalization)
  Sender: NOVARTIS
  Company Number: AU-002147023-NVSC2024AU187366

PATIENT
  Sex: Female

DRUGS (3)
  1. RIBOCICLIB [Suspect]
     Active Substance: RIBOCICLIB
     Indication: Breast cancer
     Dosage: UNK
     Route: 065
     Dates: start: 20210212, end: 20210526
  2. ANASTROZOLE [Concomitant]
     Active Substance: ANASTROZOLE
     Indication: Product used for unknown indication
     Dosage: UNK
     Route: 065
  3. FULVESTRANT [Concomitant]
     Active Substance: FULVESTRANT
     Indication: Product used for unknown indication
     Dosage: UNK
     Route: 065

REACTIONS (1)
  - Bone disorder [Recovered/Resolved]
